FAERS Safety Report 13136754 (Version 2)
Quarter: 2017Q1

REPORT INFORMATION
  Report Type: Report from Study
  Country: US (occurrence: US)
  Receive Date: 20170123
  Receipt Date: 20170317
  Transmission Date: 20170428
  Serious: Yes (Death)
  Sender: FDA-Public Use
  Company Number: US-SUN PHARMACEUTICAL INDUSTRIES LTD-2017US-132034

PATIENT
  Sex: Female

DRUGS (1)
  1. CARBOPLATIN. [Suspect]
     Active Substance: CARBOPLATIN
     Indication: OVARIAN CANCER
     Dosage: UNK
     Route: 065

REACTIONS (2)
  - Cardio-respiratory arrest [Fatal]
  - Anaphylactic reaction [Fatal]
